FAERS Safety Report 5254824-1 (Version None)
Quarter: 2007Q1

REPORT INFORMATION
  Report Type: 
  Country: None (occurrence: None)
  Receive Date: 20070301
  Receipt Date: 20070301
  Transmission Date: 20070707
  Serious: No
  Sender: FDA-Public Use
  Company Number: None

PATIENT
  Age: 52 Year
  Sex: Female
  Weight: 90.7194 kg

DRUGS (3)
  1. ZICAM [Suspect]
     Indication: INFLUENZA LIKE ILLNESS
     Dosage: 1 SPRAY TO EACH NARE NASAL
     Route: 045
     Dates: start: 20070205, end: 20070208
  2. ZICAM [Suspect]
     Indication: NASOPHARYNGITIS
     Dosage: 1 SPRAY TO EACH NARE NASAL
     Route: 045
     Dates: start: 20070205, end: 20070208
  3. ZICAM [Suspect]
     Indication: PROPHYLAXIS
     Dosage: 1 SPRAY TO EACH NARE NASAL
     Route: 045
     Dates: start: 20070205, end: 20070208

REACTIONS (6)
  - AGEUSIA [None]
  - ANOSMIA [None]
  - DYSGEUSIA [None]
  - HYPOAESTHESIA [None]
  - HYPOGEUSIA [None]
  - NASAL DISCOMFORT [None]
